FAERS Safety Report 8013846-8 (Version None)
Quarter: 2011Q4

REPORT INFORMATION
  Report Type: 
  Country: None (occurrence: None)
  Receive Date: 20111229
  Receipt Date: 20111220
  Transmission Date: 20120403
  Serious: Yes (Hospitalization)
  Sender: FDA-Public Use
  Company Number: PHHY2011JP103506

PATIENT
  Age: 87 Year
  Sex: Female

DRUGS (5)
  1. EXELON [Suspect]
     Indication: DEMENTIA ALZHEIMER'S TYPE
     Dosage: 4.5 MG/24 HOURS
     Route: 062
     Dates: start: 20110805, end: 20110902
  2. EXELON [Suspect]
     Dosage: 13.5 MG/24 HOURS
     Route: 062
     Dates: start: 20111020, end: 20111028
  3. EXELON [Suspect]
     Dosage: 9 MG/24 HOURS
     Route: 062
     Dates: start: 20111028
  4. EXELON [Suspect]
     Dosage: 9 MG/24 HOURS
     Route: 062
     Dates: start: 20110903, end: 20111020
  5. EXELON [Suspect]
     Dosage: 4.5 MG/24 HOURS
     Route: 062

REACTIONS (2)
  - APHAGIA [None]
  - SOMNOLENCE [None]
